FAERS Safety Report 9191332 (Version 1)
Quarter: 2013Q1

REPORT INFORMATION
  Report Type: Report from Study
  Country: US (occurrence: US)
  Receive Date: 20130326
  Receipt Date: 20130326
  Transmission Date: 20140127
  Serious: Yes (Other)
  Sender: FDA-Public Use
  Company Number: US-PURDUE-USA-2013-0100066

PATIENT
  Sex: Female

DRUGS (2)
  1. OXYCONTIN (NDA 22-272) [Suspect]
     Indication: BONE CANCER
     Dosage: 80 MG, Q8H
     Route: 048
  2. NORCO [Concomitant]
     Indication: BREAKTHROUGH PAIN

REACTIONS (4)
  - Bone cancer metastatic [Not Recovered/Not Resolved]
  - Incorrect dose administered [Not Recovered/Not Resolved]
  - Cancer pain [Not Recovered/Not Resolved]
  - Breakthrough pain [Not Recovered/Not Resolved]
